FAERS Safety Report 8399230-6 (Version None)
Quarter: 2012Q2

REPORT INFORMATION
  Report Type: 
  Country: None (occurrence: None)
  Receive Date: 20120531
  Receipt Date: 20120524
  Transmission Date: 20120825
  Serious: Yes (Hospitalization)
  Sender: FDA-Public Use
  Company Number: US-GLAXOSMITHKLINE-A0979373A

PATIENT
  Age: 2 Month

DRUGS (2)
  1. FLOLAN [Suspect]
     Indication: PRODUCT USED FOR UNKNOWN INDICATION
     Dosage: 10.75NGKM CONTINUOUS
     Route: 042
     Dates: start: 20120509
  2. REVATIO [Concomitant]

REACTIONS (1)
  - SEPSIS [None]
